FAERS Safety Report 18648032 (Version 3)
Quarter: 2021Q2

REPORT INFORMATION
  Report Type: Report from Study
  Country: JP (occurrence: JP)
  Receive Date: 20201222
  Receipt Date: 20210630
  Transmission Date: 20210717
  Serious: Yes (Hospitalization, Disabling, Other)
  Sender: FDA-Public Use
  Company Number: JP-RECORDATI RARE DISEASES INC.-2019010445

PATIENT
  Age: 2 Day
  Sex: Male
  Weight: .68 kg

DRUGS (7)
  1. NEOPROFEN [Suspect]
     Active Substance: IBUPROFEN LYSINE
     Dosage: 3.5 MILLIGRAM, QD
     Route: 042
     Dates: start: 20190322, end: 20190322
  2. AZACTAM [Concomitant]
     Active Substance: AZTREONAM
     Indication: PRODUCT USED FOR UNKNOWN INDICATION
     Dosage: UNK
     Route: 065
     Dates: start: 20190319, end: 20190322
  3. NEOPROFEN [Suspect]
     Active Substance: IBUPROFEN LYSINE
     Indication: PATENT DUCTUS ARTERIOSUS
     Dosage: 6.5 MILLIGRAM, QD
     Route: 042
     Dates: start: 20190320, end: 20190320
  4. SULBACILLIN [Concomitant]
     Active Substance: AMPICILLIN SODIUM\SULBACTAM SODIUM
     Indication: PRODUCT USED FOR UNKNOWN INDICATION
     Dosage: UNK
     Route: 065
     Dates: start: 20190319, end: 20190322
  5. POLYGLOBIN [Concomitant]
     Active Substance: HUMAN IMMUNOGLOBULIN G
     Indication: PRODUCT USED FOR UNKNOWN INDICATION
     Dosage: UNK
     Route: 065
     Dates: start: 20190319, end: 20190321
  6. NEOPROFEN [Suspect]
     Active Substance: IBUPROFEN LYSINE
     Dosage: 3.5 MILLIGRAM, QD
     Route: 042
     Dates: start: 20190321, end: 20190321
  7. PRODIF [Concomitant]
     Active Substance: FOSFLUCONAZOLE
     Indication: PRODUCT USED FOR UNKNOWN INDICATION
     Dosage: UNK
     Route: 065
     Dates: start: 20190319, end: 20190322

REACTIONS (11)
  - Neonatal intestinal perforation [Recovered/Resolved with Sequelae]
  - Retinopathy of prematurity [Recovered/Resolved]
  - Intraventricular haemorrhage [Recovered/Resolved with Sequelae]
  - Osteopenia [Recovered/Resolved]
  - Abdominal distension [Recovered/Resolved]
  - Device related infection [Recovered/Resolved]
  - Urine output decreased [Recovered/Resolved]
  - Hypotension [Recovering/Resolving]
  - Anaemia neonatal [Recovering/Resolving]
  - Bronchopulmonary dysplasia [Recovered/Resolved]
  - Blood thyroid stimulating hormone increased [Recovering/Resolving]

NARRATIVE: CASE EVENT DATE: 20190321
